FAERS Safety Report 17547729 (Version 3)
Quarter: 2020Q2

REPORT INFORMATION
  Report Type: Report from Study
  Country: GB (occurrence: GB)
  Receive Date: 20200316
  Receipt Date: 20200615
  Transmission Date: 20200713
  Serious: Yes (Other)
  Sender: FDA-Public Use
  Company Number: GB-VERTEX PHARMACEUTICALS-2020-005151

PATIENT
  Age: 26 Year
  Sex: Female
  Weight: 150 kg

DRUGS (18)
  1. SYMBICORT [Concomitant]
     Active Substance: BUDESONIDE\FORMOTEROL FUMARATE DIHYDRATE
     Indication: CYSTIC FIBROSIS LUNG
     Dosage: 2 PUFFS, BID
     Dates: start: 200310
  2. CREON [Concomitant]
     Active Substance: PANCRELIPASE AMYLASE\PANCRELIPASE LIPASE\PANCRELIPASE PROTEASE
     Indication: PANCREATIC FAILURE
     Dosage: 50 DOSAGE FORM
     Dates: start: 19940617
  3. PARACETAMOL [Concomitant]
     Active Substance: ACETAMINOPHEN
     Indication: ARTHRALGIA
     Dosage: 1 G, PRN
     Route: 048
     Dates: start: 2004
  4. BRICANYL [Concomitant]
     Active Substance: TERBUTALINE SULFATE
     Indication: CYSTIC FIBROSIS LUNG
     Dosage: 2 PUFFS, PRN
     Dates: start: 20001005
  5. VX-445/VX-661/VX-770 [Suspect]
     Active Substance: ELEXACAFTOR\IVACAFTOR\TEZACAFTOR
     Indication: CYSTIC FIBROSIS
     Dosage: 200MG OD, 100 MG QD, 150 MG BID
     Route: 048
     Dates: start: 20200120
  6. PLACEBO [Suspect]
     Active Substance: UNSPECIFIED INGREDIENT
     Indication: CYSTIC FIBROSIS
     Dosage: 100 MG QD, 150 MG, BID, 150 MG, BID
     Route: 048
  7. PREDNISOLONE. [Concomitant]
     Active Substance: PREDNISOLONE
     Indication: INFECTIVE PULMONARY EXACERBATION OF CYSTIC FIBROSIS
     Dosage: 30 MG, QD
     Route: 048
     Dates: start: 20191108, end: 20191114
  8. VITAMIN K [PHYTOMENADIONE] [Concomitant]
     Indication: PANCREATIC FAILURE
     Dosage: 10 MG QD
     Route: 048
     Dates: start: 19940617
  9. PROMIXIN [COLISTIMETHATE SODIUM] [Concomitant]
     Active Substance: COLISTIMETHATE SODIUM
     Indication: PSEUDOMONAS INFECTION
     Dosage: UNK, BID
     Route: 045
     Dates: start: 200603
  10. MENADIOL [Concomitant]
     Active Substance: MENADIOL
     Dosage: 10 MG, QD
  11. RANITIDINE. [Concomitant]
     Active Substance: RANITIDINE
     Indication: GASTROOESOPHAGEAL REFLUX DISEASE
     Dosage: 150 MG, BID
     Route: 048
     Dates: start: 2018
  12. VITAMIN E [Concomitant]
     Active Substance: .ALPHA.-TOCOPHEROL
     Indication: PANCREATIC FAILURE
     Dosage: 150 IU, QD
     Route: 048
     Dates: start: 19940617
  13. OMEPRAZOLE. [Concomitant]
     Active Substance: OMEPRAZOLE
     Indication: GASTROOESOPHAGEAL REFLUX DISEASE
     Dosage: 40 MG, QD
     Route: 048
     Dates: start: 2016
  14. IBUPROFEN. [Concomitant]
     Active Substance: IBUPROFEN
     Indication: ARTHRALGIA
     Dosage: 200 MG, PRN
     Route: 048
     Dates: start: 2004
  15. GAVISCON ADVANCE [SODIUM ALGINATE] [Concomitant]
     Indication: GASTROOESOPHAGEAL REFLUX DISEASE
     Dosage: 2 DOSAGE FORM, PRN
     Route: 048
     Dates: start: 2016
  16. NEXPLANON [Concomitant]
     Active Substance: ETONOGESTREL
     Dosage: UNK
     Route: 058
     Dates: start: 201901
  17. CETRIZINE [Concomitant]
     Active Substance: CETIRIZINE HYDROCHLORIDE
     Dosage: 10 MG OD, PRN
  18. CIPROFLOXACIN. [Concomitant]
     Active Substance: CIPROFLOXACIN
     Indication: INFECTIVE PULMONARY EXACERBATION OF CYSTIC FIBROSIS
     Dosage: 700 MG, QD
     Route: 048
     Dates: start: 20191022, end: 20191105

REACTIONS (2)
  - Depression [Recovered/Resolved]
  - Anxiety [Recovered/Resolved]

NARRATIVE: CASE EVENT DATE: 20200306
